FAERS Safety Report 7071697-5 (Version None)
Quarter: 2010Q4

REPORT INFORMATION
  Report Type: 
  Country: None (occurrence: None)
  Receive Date: 20101029
  Receipt Date: 20091109
  Transmission Date: 20110411
  Serious: No
  Sender: FDA-Public Use
  Company Number: A0811071A

PATIENT
  Age: 83 Year
  Sex: Female

DRUGS (4)
  1. FLU VACCINE [Suspect]
     Indication: PROPHYLAXIS
     Route: 042
     Dates: start: 20090914, end: 20090914
  2. ADVAIR DISKUS 100/50 [Suspect]
     Indication: ASTHMA
     Dosage: 1PUFF AT NIGHT
     Route: 055
     Dates: start: 20070101, end: 20090901
  3. COMBIVENT [Concomitant]
  4. ADVAIR DISKUS 100/50 [Concomitant]
     Dates: start: 20080101

REACTIONS (10)
  - ASTHENIA [None]
  - DECREASED APPETITE [None]
  - DYSPHONIA [None]
  - FATIGUE [None]
  - MALAISE [None]
  - OROPHARYNGITIS FUNGAL [None]
  - PRODUCT QUALITY ISSUE [None]
  - PYREXIA [None]
  - SPEECH DISORDER [None]
  - THROAT IRRITATION [None]
